FAERS Safety Report 23381397 (Version 2)
Quarter: 2024Q2

REPORT INFORMATION
  Report Type: Spontaneous
  Country: FR (occurrence: FR)
  Receive Date: 20240109
  Receipt Date: 20240408
  Transmission Date: 20240716
  Serious: Yes (Life-Threatening, Other)
  Sender: FDA-Public Use
  Company Number: FR-Accord-399524

PATIENT
  Age: 19 Year
  Sex: Male

DRUGS (8)
  1. METHOTREXATE [Suspect]
     Active Substance: METHOTREXATE
     Indication: Acute biphenotypic leukaemia
     Dosage: HIGH-DOSE?CUMULATIVE DOSE: 16 G/M2
  2. CYCLOPHOSPHAMIDE [Suspect]
     Active Substance: CYCLOPHOSPHAMIDE
     Indication: Bone marrow conditioning regimen
  3. PEGASPARGASE [Suspect]
     Active Substance: PEGASPARGASE
     Indication: Acute biphenotypic leukaemia
     Dosage: CUMULATIVE DOSE: 4000 IU/M2
  4. VINCRISTINE [Suspect]
     Active Substance: VINCRISTINE
     Indication: Acute biphenotypic leukaemia
  5. MERCAPTOPURINE [Suspect]
     Active Substance: MERCAPTOPURINE
     Indication: Acute biphenotypic leukaemia
  6. DARATUMUMAB [Suspect]
     Active Substance: DARATUMUMAB
     Indication: Acute biphenotypic leukaemia
     Route: 058
  7. URSODIOL [Concomitant]
     Active Substance: URSODIOL
  8. METHOTREXATE [Suspect]
     Active Substance: METHOTREXATE
     Indication: Prophylaxis against graft versus host disease
     Dosage: HIGH-DOSE?CUMULATIVE DOSE: 16 G/M2

REACTIONS (6)
  - Liver function test abnormal [Unknown]
  - Venoocclusive disease [Recovered/Resolved]
  - Thrombocytopenia [Recovered/Resolved]
  - Off label use [Unknown]
  - Hepatic cytolysis [Recovered/Resolved]
  - Cholestasis [Recovered/Resolved]
